FAERS Safety Report 11808950 (Version 4)
Quarter: 2018Q2

REPORT INFORMATION
  Report Type: Spontaneous
  Country: US (occurrence: US)
  Receive Date: 20151207
  Receipt Date: 20180608
  Transmission Date: 20180711
  Serious: No
  Sender: FDA-Public Use
  Company Number: US-ROCHE-1576515

PATIENT
  Sex: Female

DRUGS (16)
  1. ACTEMRA [Suspect]
     Active Substance: TOCILIZUMAB
     Indication: RHEUMATOID ARTHRITIS
     Route: 058
     Dates: start: 20141011
  2. RESTASIS [Concomitant]
     Active Substance: CYCLOSPORINE
  3. FISH OIL [Concomitant]
     Active Substance: FISH OIL
  4. VITAMIN C [Concomitant]
     Active Substance: ASCORBIC ACID
  5. ACTEMRA [Suspect]
     Active Substance: TOCILIZUMAB
     Dosage: 162MG/0.9ML
     Route: 058
     Dates: start: 20160316
  6. NEXIUM [Concomitant]
     Active Substance: ESOMEPRAZOLE MAGNESIUM
  7. ASA [Concomitant]
     Active Substance: ASPIRIN
  8. IBUPROFEN. [Concomitant]
     Active Substance: IBUPROFEN
  9. ADVAIR HFA [Concomitant]
     Active Substance: FLUTICASONE PROPIONATE\SALMETEROL XINAFOATE
  10. LACTAID [Concomitant]
     Active Substance: LACTASE
  11. ACTEMRA [Suspect]
     Active Substance: TOCILIZUMAB
     Dosage: 162MG/0.9ML
     Route: 058
     Dates: start: 20150601
  12. FELODIPINE. [Concomitant]
     Active Substance: FELODIPINE
  13. VYTORIN [Concomitant]
     Active Substance: EZETIMIBE\SIMVASTATIN
  14. FOLIC ACID. [Concomitant]
     Active Substance: FOLIC ACID
  15. SYNTHROID [Concomitant]
     Active Substance: LEVOTHYROXINE SODIUM
  16. ASPIRIN. [Concomitant]
     Active Substance: ASPIRIN

REACTIONS (4)
  - Bronchitis [Unknown]
  - Arthropod bite [Unknown]
  - Sinusitis [Unknown]
  - Influenza [Unknown]
